FAERS Safety Report 4522587-0 (Version None)
Quarter: 2004Q4

REPORT INFORMATION
  Report Type: 
  Country: None (occurrence: None)
  Receive Date: 20041207
  Receipt Date: 20041117
  Transmission Date: 20050328
  Serious: Yes (Hospitalization)
  Sender: FDA-Public Use
  Company Number: EWC041141491

PATIENT
  Sex: Female
  Weight: 50 kg

DRUGS (12)
  1. ZYPREXA [Suspect]
     Dosage: 25 MG DAY
     Dates: start: 19990101
  2. NEXIUM [Concomitant]
  3. CITALOPRAM HYDROBROMIDE [Concomitant]
  4. NITRAZEPAM [Concomitant]
  5. MULTITABS [Concomitant]
  6. IMADRAX (AMOXICILLIN TRIHYDRATE) [Concomitant]
  7. METRONIDAZOLE [Concomitant]
  8. TRUXAL (CHLORPROTHIXENE HYDROCHLORIDE) [Concomitant]
  9. CITALOPRAM [Concomitant]
  10. IRON [Concomitant]
  11. FUROSEMIDE [Concomitant]
  12. POTASSIUM CHLORIDE [Concomitant]

REACTIONS (12)
  - ANAEMIA [None]
  - ANAL FISSURE [None]
  - BLOOD POTASSIUM DECREASED [None]
  - ELECTROLYTE IMBALANCE [None]
  - HALLUCINATION [None]
  - LEUKOCYTOSIS [None]
  - MUSCLE CRAMP [None]
  - OEDEMA [None]
  - REBOUND EFFECT [None]
  - RED BLOOD CELL SEDIMENTATION RATE INCREASED [None]
  - SUICIDE ATTEMPT [None]
  - THROMBOCYTHAEMIA [None]
